FAERS Safety Report 7436797-6 (Version None)
Quarter: 2011Q2

REPORT INFORMATION
  Report Type: 
  Country: None (occurrence: None)
  Receive Date: 20110426
  Receipt Date: 20110424
  Transmission Date: 20111010
  Serious: No
  Sender: FDA-Public Use
  Company Number: US-PFIZER INC-2011088267

PATIENT
  Sex: Female
  Weight: 58.957 kg

DRUGS (1)
  1. ADVIL PM [Suspect]
     Indication: HEADACHE
     Dosage: 3 TABLETS
     Route: 048
     Dates: start: 20110424

REACTIONS (3)
  - WRONG DRUG ADMINISTERED [None]
  - OVERDOSE [None]
  - SOMNOLENCE [None]
